FAERS Safety Report 9783834 (Version 1)
Quarter: 2013Q4

REPORT INFORMATION
  Report Type: Spontaneous
  Country: US (occurrence: US)
  Receive Date: 20131226
  Receipt Date: 20131226
  Transmission Date: 20140711
  Serious: Yes (Hospitalization)
  Sender: FDA-Public Use
  Company Number: US-PFIZER INC-2013365540

PATIENT
  Age: 81 Year
  Sex: Female
  Weight: 55.33 kg

DRUGS (2)
  1. VFEND [Suspect]
     Indication: LUNG INFECTION
     Dosage: UNK
     Route: 048
     Dates: start: 201302, end: 201311
  2. VITAMIN D [Concomitant]
     Dosage: UNK

REACTIONS (1)
  - Lung infection [Not Recovered/Not Resolved]
